FAERS Safety Report 16379093 (Version 1)
Quarter: 2019Q2

REPORT INFORMATION
  Report Type: Spontaneous
  Country: JP (occurrence: JP)
  Receive Date: 20190531
  Receipt Date: 20190531
  Transmission Date: 20190711
  Serious: Yes (Other)
  Sender: FDA-Public Use
  Company Number: JP-JNJFOC-20190533989

PATIENT

DRUGS (1)
  1. ZYTIGA [Suspect]
     Active Substance: ABIRATERONE ACETATE
     Indication: PRODUCT USED FOR UNKNOWN INDICATION
     Route: 048

REACTIONS (10)
  - Oedema [Unknown]
  - Cholecystitis [Unknown]
  - Decreased appetite [Unknown]
  - Hypokalaemia [Unknown]
  - Arrhythmia [Unknown]
  - Cerebral infarction [Unknown]
  - Dizziness [Unknown]
  - Hepatic function abnormal [Unknown]
  - Hyperkalaemia [Unknown]
  - Fatigue [Unknown]
